FAERS Safety Report 24183045 (Version 1)
Quarter: 2024Q3

REPORT INFORMATION
  Report Type: Spontaneous
  Country: CN (occurrence: CN)
  Receive Date: 20240807
  Receipt Date: 20240807
  Transmission Date: 20241016
  Serious: Yes (Death, Hospitalization)
  Sender: AMGEN
  Company Number: CN-SERVIER-S24009620

PATIENT

DRUGS (3)
  1. IVABRADINE [Suspect]
     Active Substance: IVABRADINE
     Indication: Hypotension
     Dosage: 5 MG, BID
     Route: 065
  2. IVABRADINE [Suspect]
     Active Substance: IVABRADINE
     Indication: Heart failure with reduced ejection fraction
     Dosage: THEN ADJUSTED ACCORDING TO THE RESTING HEART RATE 7.5 MG, BID OR 2.5 MG, BID
     Route: 065
  3. IVABRADINE [Suspect]
     Active Substance: IVABRADINE
     Dosage: THEN ADJUSTED ACCORDING TO THE RESTING HEART RATE 2.5 MG, BID OR 7.5 MG, BID
     Route: 065

REACTIONS (4)
  - Death [Fatal]
  - Hospitalisation [Fatal]
  - Cardiovascular disorder [Fatal]
  - Drug ineffective [Fatal]
